FAERS Safety Report 8310618-1 (Version None)
Quarter: 2012Q2

REPORT INFORMATION
  Report Type: 
  Country: None (occurrence: None)
  Receive Date: 20120425
  Receipt Date: 20120425
  Transmission Date: 20120825
  Serious: Yes (Hospitalization)
  Sender: FDA-Public Use
  Company Number: None

PATIENT
  Sex: Male

DRUGS (1)
  1. CLARITHROMYCIN [Suspect]
     Indication: BRONCHITIS
     Dosage: 500MG
     Route: 048
     Dates: start: 20120306, end: 20120313

REACTIONS (4)
  - HEPATIC FUNCTION ABNORMAL [None]
  - AMMONIA INCREASED [None]
  - RENAL IMPAIRMENT [None]
  - HALLUCINATION [None]
